FAERS Safety Report 11167125 (Version 1)
Quarter: 2015Q2

REPORT INFORMATION
  Report Type: Spontaneous
  Country: US (occurrence: US)
  Receive Date: 20150605
  Receipt Date: 20150605
  Transmission Date: 20150821
  Serious: No
  Sender: FDA-Public Use
  Company Number: US-BRISTOL-MYERS SQUIBB COMPANY-BMS-2015-035986

PATIENT

DRUGS (4)
  1. ABILIFY [Suspect]
     Active Substance: ARIPIPRAZOLE
     Indication: DEPRESSION
     Route: 065
  2. EFFEXOR [Suspect]
     Active Substance: VENLAFAXINE HYDROCHLORIDE
     Indication: DELUSION
  3. ABILIFY [Suspect]
     Active Substance: ARIPIPRAZOLE
     Indication: DELUSION
  4. EFFEXOR [Suspect]
     Active Substance: VENLAFAXINE HYDROCHLORIDE
     Indication: DEPRESSION
     Route: 065

REACTIONS (1)
  - Off label use [Unknown]
